FAERS Safety Report 16787534 (Version 7)
Quarter: 2022Q2

REPORT INFORMATION
  Report Type: Spontaneous
  Country: GB (occurrence: GB)
  Receive Date: 20190909
  Receipt Date: 20220429
  Transmission Date: 20220721
  Serious: Yes (Life-Threatening, Hospitalization, Disabling, Other)
  Sender: FDA-Public Use
  Company Number: None

PATIENT
  Age: 31 Year
  Sex: Female
  Weight: 63.5 kg

DRUGS (73)
  1. LORAZEPAM [Suspect]
     Active Substance: LORAZEPAM
     Indication: Sedation
     Route: 048
     Dates: start: 20110523, end: 20110627
  2. LORAZEPAM [Suspect]
     Active Substance: LORAZEPAM
     Route: 048
     Dates: start: 20110224, end: 20110410
  3. LORAZEPAM [Suspect]
     Active Substance: LORAZEPAM
     Route: 048
     Dates: start: 20110224, end: 20110410
  4. LORAZEPAM [Suspect]
     Active Substance: LORAZEPAM
     Route: 048
     Dates: start: 20110224, end: 20110410
  5. LORAZEPAM [Suspect]
     Active Substance: LORAZEPAM
     Route: 048
     Dates: start: 20110523, end: 20110627
  6. LORAZEPAM [Suspect]
     Active Substance: LORAZEPAM
     Route: 048
     Dates: start: 20110202, end: 20110410
  7. LORAZEPAM [Suspect]
     Active Substance: LORAZEPAM
     Route: 048
  8. LORAZEPAM [Suspect]
     Active Substance: LORAZEPAM
     Dosage: 16 MG, QD (4 MG QID
     Route: 048
     Dates: start: 20110523, end: 20110627
  9. LORAZEPAM [Suspect]
     Active Substance: LORAZEPAM
     Route: 048
     Dates: start: 20110725
  10. DIAZEPAM [Suspect]
     Active Substance: DIAZEPAM
     Indication: Muscle spasms
     Route: 048
  11. DIAZEPAM [Suspect]
     Active Substance: DIAZEPAM
     Indication: Depression
     Dosage: 20 MG, QD 5 MILLIGRAM, QID (5 MG QDS AND NOW ON 2-2-4 MG)
     Route: 065
     Dates: start: 20110725
  12. DIAZEPAM [Suspect]
     Active Substance: DIAZEPAM
     Indication: Serotonin syndrome
     Route: 065
  13. DIAZEPAM [Suspect]
     Active Substance: DIAZEPAM
     Dosage: 5 MG, QID
     Route: 048
  14. DIAZEPAM [Suspect]
     Active Substance: DIAZEPAM
     Dosage: 8 MG, QD (5 MG QDS AND NOW ON 2-2-4 MG)
     Route: 048
     Dates: start: 20110725
  15. DIAZEPAM [Suspect]
     Active Substance: DIAZEPAM
     Dosage: 20 MG, QD, 5 MILLIGRAM, QID (5 MG QDS AND NOW ON 2-2-4 MG)
     Route: 048
     Dates: start: 20110725
  16. DIAZEPAM [Suspect]
     Active Substance: DIAZEPAM
     Route: 048
  17. DIAZEPAM [Suspect]
     Active Substance: DIAZEPAM
     Dosage: UNKNOWN, QD (5 MG QDS AND NOW ON 2-2-4 MG)
     Route: 048
     Dates: start: 20110725
  18. DIAZEPAM [Suspect]
     Active Substance: DIAZEPAM
     Route: 065
     Dates: start: 20110725
  19. PAROXETINE HYDROCHLORIDE [Suspect]
     Active Substance: PAROXETINE HYDROCHLORIDE
     Indication: Depression
     Route: 048
     Dates: start: 201105, end: 20110706
  20. PAROXETINE HYDROCHLORIDE [Suspect]
     Active Substance: PAROXETINE HYDROCHLORIDE
     Dosage: 20 MG, TID INTERRUPTED
     Route: 048
  21. PAROXETINE HYDROCHLORIDE [Suspect]
     Active Substance: PAROXETINE HYDROCHLORIDE
     Dosage: 180 MG, TID (60 MG TID)
     Route: 048
     Dates: start: 19990801, end: 201105
  22. PAROXETINE HYDROCHLORIDE [Suspect]
     Active Substance: PAROXETINE HYDROCHLORIDE
     Route: 048
     Dates: start: 201012
  23. PAROXETINE HYDROCHLORIDE [Suspect]
     Active Substance: PAROXETINE HYDROCHLORIDE
     Dosage: 60 MG, QD (20 MG 3 TIMES PER DAY)
     Route: 048
     Dates: start: 1997
  24. PAROXETINE HYDROCHLORIDE [Suspect]
     Active Substance: PAROXETINE HYDROCHLORIDE
     Dosage: 20 MG, TID (60 MG, QD
     Route: 048
  25. PAROXETINE HYDROCHLORIDE [Suspect]
     Active Substance: PAROXETINE HYDROCHLORIDE
     Route: 048
  26. PAROXETINE HYDROCHLORIDE [Suspect]
     Active Substance: PAROXETINE HYDROCHLORIDE
     Dosage: 60 MG, QD (20 MG 3 TIMES PER DAY)
     Route: 048
     Dates: start: 19990801, end: 201105
  27. AMITRIPTYLINE HYDROCHLORIDE [Suspect]
     Active Substance: AMITRIPTYLINE HYDROCHLORIDE
     Indication: Muscle spasms
     Route: 065
  28. AMITRIPTYLINE HYDROCHLORIDE [Suspect]
     Active Substance: AMITRIPTYLINE HYDROCHLORIDE
     Indication: Serotonin syndrome
  29. AMITRIPTYLINE HYDROCHLORIDE [Suspect]
     Active Substance: AMITRIPTYLINE HYDROCHLORIDE
     Indication: Neuralgia
  30. AMITRIPTYLINE HYDROCHLORIDE [Suspect]
     Active Substance: AMITRIPTYLINE HYDROCHLORIDE
     Indication: Drug withdrawal syndrome
  31. MIRTAZAPINE [Suspect]
     Active Substance: MIRTAZAPINE
     Indication: Depression
     Route: 065
     Dates: start: 20110224, end: 20110506
  32. MIRTAZAPINE [Suspect]
     Active Substance: MIRTAZAPINE
     Indication: Psychotic disorder
     Dosage: 30 MG, QD (30 MG IN THE DAY AND 15 MG AT NIGHT,TABLET
     Route: 048
     Dates: start: 20100923, end: 20101108
  33. MIRTAZAPINE [Suspect]
     Active Substance: MIRTAZAPINE
     Dosage: 15 MG, QD (30MG IN THE DAY AND 15MG AT NIGHT)
     Route: 065
     Dates: start: 20110224, end: 20110506
  34. MIRTAZAPINE [Suspect]
     Active Substance: MIRTAZAPINE
     Route: 048
     Dates: start: 20100923, end: 20101108
  35. MIRTAZAPINE [Suspect]
     Active Substance: MIRTAZAPINE
     Route: 048
     Dates: start: 20101007, end: 20101012
  36. MIRTAZAPINE [Suspect]
     Active Substance: MIRTAZAPINE
     Route: 065
     Dates: start: 20110224, end: 20110506
  37. MIRTAZAPINE [Suspect]
     Active Substance: MIRTAZAPINE
     Dosage: 15 MG, QD (30 MG IN THE DAY AND 15 MG AT NIGHT, TABLET
     Route: 048
     Dates: start: 20101007, end: 20101012
  38. TRAMADOL HYDROCHLORIDE [Suspect]
     Active Substance: TRAMADOL HYDROCHLORIDE
     Indication: Neck pain
     Route: 044
  39. TRAMADOL HYDROCHLORIDE [Suspect]
     Active Substance: TRAMADOL HYDROCHLORIDE
     Indication: Back pain
     Route: 065
  40. TRAMADOL HYDROCHLORIDE [Suspect]
     Active Substance: TRAMADOL HYDROCHLORIDE
     Indication: Analgesic therapy
  41. TRAMADOL [Suspect]
     Active Substance: TRAMADOL
     Indication: Analgesic therapy
     Route: 048
     Dates: start: 20081201, end: 20101210
  42. TRAMADOL [Suspect]
     Active Substance: TRAMADOL
     Indication: Neck pain
     Route: 065
  43. TRAMADOL [Suspect]
     Active Substance: TRAMADOL
     Indication: Back pain
     Dosage: 2008/2009, DRUG START/DRUG WITHDRAWN
     Route: 048
  44. TRAMADOL [Suspect]
     Active Substance: TRAMADOL
     Indication: Oculogyric crisis
     Route: 065
  45. TRAMADOL [Suspect]
     Active Substance: TRAMADOL
     Dosage: 4 CYCLICAL, QD (50-100 MG QD)
     Route: 048
     Dates: start: 20081201, end: 20101210
  46. TRAMADOL [Suspect]
     Active Substance: TRAMADOL
     Dosage: 2008/2009, QD (4 CYCLICAL (50-100MG QDS FOR ONE WEEK ONLY))
     Route: 048
  47. TRAMADOL [Suspect]
     Active Substance: TRAMADOL
     Route: 048
  48. TRAMADOL [Suspect]
     Active Substance: TRAMADOL
     Dosage: 50-100MG
     Route: 048
  49. DOMPERIDONE [Suspect]
     Active Substance: DOMPERIDONE
     Indication: Product used for unknown indication
     Route: 065
  50. DOMPERIDONE [Suspect]
     Active Substance: DOMPERIDONE
     Route: 048
     Dates: start: 20100923, end: 20101108
  51. PROCYCLIDINE HYDROCHLORIDE [Suspect]
     Active Substance: PROCYCLIDINE HYDROCHLORIDE
     Indication: Extrapyramidal disorder
     Dosage: 15 MG, QD (5 MG TID
     Route: 048
     Dates: start: 20110503, end: 20110510
  52. PROCYCLIDINE HYDROCHLORIDE [Suspect]
     Active Substance: PROCYCLIDINE HYDROCHLORIDE
     Indication: Oculogyric crisis
     Route: 048
     Dates: start: 20110324, end: 20110506
  53. PROCYCLIDINE HYDROCHLORIDE [Suspect]
     Active Substance: PROCYCLIDINE HYDROCHLORIDE
     Route: 048
     Dates: start: 1995, end: 1996
  54. PROCYCLIDINE HYDROCHLORIDE [Suspect]
     Active Substance: PROCYCLIDINE HYDROCHLORIDE
     Dosage: 5 MG, QD
     Route: 048
     Dates: start: 20110503, end: 20110510
  55. PROCYCLIDINE HYDROCHLORIDE [Suspect]
     Active Substance: PROCYCLIDINE HYDROCHLORIDE
     Dosage: 20 MG, QD, IN 1ST TRIMESTER
     Route: 065
  56. PROCYCLIDINE HYDROCHLORIDE [Suspect]
     Active Substance: PROCYCLIDINE HYDROCHLORIDE
     Dosage: 20 MG, QD
     Route: 048
     Dates: start: 20110324, end: 20110506
  57. PROCYCLIDINE HYDROCHLORIDE [Suspect]
     Active Substance: PROCYCLIDINE HYDROCHLORIDE
     Route: 048
     Dates: start: 1995, end: 1995
  58. OMEPRAZOLE [Suspect]
     Active Substance: OMEPRAZOLE
     Indication: Dyspepsia
     Route: 065
     Dates: start: 20110525
  59. CLONAZEPAM [Suspect]
     Active Substance: CLONAZEPAM
     Indication: Sedation
     Route: 048
     Dates: start: 20110224, end: 20110410
  60. PHOSPHORUS [Suspect]
     Active Substance: PHOSPHORUS
     Indication: Product used for unknown indication
     Route: 065
  61. QUETIAPINE FUMARATE [Suspect]
     Active Substance: QUETIAPINE FUMARATE
     Indication: Psychotic disorder
     Route: 048
     Dates: start: 20110224, end: 20110506
  62. QUETIAPINE FUMARATE [Suspect]
     Active Substance: QUETIAPINE FUMARATE
     Route: 048
     Dates: start: 19990801, end: 20110706
  63. PAROXETINE [Suspect]
     Active Substance: PAROXETINE
     Indication: Depression
     Route: 048
     Dates: start: 19990801, end: 20110706
  64. PAROXETINE [Suspect]
     Active Substance: PAROXETINE
     Indication: Post-traumatic stress disorder
     Route: 048
     Dates: start: 201105, end: 20110706
  65. PAROXETINE [Suspect]
     Active Substance: PAROXETINE
     Dosage: 60 MG, QD (20 MG TID)
     Route: 048
     Dates: start: 19990801, end: 201105
  66. PAROXETINE [Suspect]
     Active Substance: PAROXETINE
     Route: 065
  67. PAROXETINE [Suspect]
     Active Substance: PAROXETINE
     Dosage: 60 MG, QD (20 MG TID)
     Route: 048
     Dates: start: 1997, end: 201105
  68. PAROXETINE [Suspect]
     Active Substance: PAROXETINE
     Route: 048
  69. CODEINE [Suspect]
     Active Substance: CODEINE
     Indication: Analgesic therapy
     Dosage: UNSURE QD, 24 EVERY HOUR
     Route: 048
     Dates: start: 20110615, end: 20110723
  70. CODEINE [Suspect]
     Active Substance: CODEINE
     Indication: Serotonin syndrome
     Route: 048
     Dates: start: 20110224, end: 20110410
  71. CODEINE [Suspect]
     Active Substance: CODEINE
     Dosage: (15-30 MG)
     Route: 048
     Dates: start: 20110615, end: 20110723
  72. CODEINE [Suspect]
     Active Substance: CODEINE
     Route: 048
     Dates: start: 2008, end: 2008
  73. CODEINE [Suspect]
     Active Substance: CODEINE
     Route: 048
     Dates: start: 2002, end: 2002

REACTIONS (92)
  - Muscle rigidity [Unknown]
  - Contusion [Unknown]
  - Paralysis [Unknown]
  - Mydriasis [Unknown]
  - Illness [Unknown]
  - Toxicity to various agents [Unknown]
  - Musculoskeletal stiffness [Unknown]
  - Muscle disorder [Unknown]
  - Serotonin syndrome [Not Recovered/Not Resolved]
  - Drug interaction [Unknown]
  - Pallor [Unknown]
  - Skin discolouration [Not Recovered/Not Resolved]
  - Aphasia [Not Recovered/Not Resolved]
  - H1N1 influenza [Unknown]
  - Muscle spasms [Not Recovered/Not Resolved]
  - Swollen tongue [Unknown]
  - Speech disorder [Unknown]
  - Arthralgia [Unknown]
  - Pruritus [Unknown]
  - Neuroleptic malignant syndrome [Unknown]
  - Nightmare [Unknown]
  - Feeling of body temperature change [Unknown]
  - Premature labour [Unknown]
  - Diarrhoea [Unknown]
  - Drooling [Unknown]
  - Incontinence [Not Recovered/Not Resolved]
  - Tachycardia [Unknown]
  - Psychotic disorder [Recovered/Resolved]
  - Swelling face [Unknown]
  - Hypoaesthesia [Not Recovered/Not Resolved]
  - Pruritus [Unknown]
  - Cogwheel rigidity [Unknown]
  - Tinnitus [Unknown]
  - Parosmia [Unknown]
  - Gastric pH decreased [Unknown]
  - Anxiety [Unknown]
  - Hyperhidrosis [Unknown]
  - Dyskinesia [Unknown]
  - Eye pain [Unknown]
  - Heart rate increased [Unknown]
  - Cyanosis [Unknown]
  - Gait disturbance [Unknown]
  - Schizophrenia [Unknown]
  - Sensory loss [Unknown]
  - Limb injury [Unknown]
  - Contusion [Unknown]
  - Muscle spasms [Not Recovered/Not Resolved]
  - Muscle spasms [Unknown]
  - Urinary retention [Unknown]
  - Pyrexia [Unknown]
  - Feeling of despair [Unknown]
  - Dissociation [Not Recovered/Not Resolved]
  - Mood swings [Unknown]
  - Muscle rigidity [Unknown]
  - Dyspnoea [Unknown]
  - Delirium [Unknown]
  - Derealisation [Not Recovered/Not Resolved]
  - Hypoaesthesia oral [Unknown]
  - Dystonia [Unknown]
  - Disturbance in attention [Unknown]
  - Menstrual disorder [Unknown]
  - Contusion [Unknown]
  - Emotional disorder [Unknown]
  - Restless legs syndrome [Not Recovered/Not Resolved]
  - Feeling jittery [Not Recovered/Not Resolved]
  - Balance disorder [Unknown]
  - Dizziness [Unknown]
  - Vision blurred [Unknown]
  - Hallucinations, mixed [Unknown]
  - Somnolence [Unknown]
  - Fatigue [Unknown]
  - Seizure [Unknown]
  - Blood sodium decreased [Unknown]
  - Visual impairment [Unknown]
  - Tremor [Not Recovered/Not Resolved]
  - Mania [Not Recovered/Not Resolved]
  - Restlessness [Unknown]
  - Headache [Unknown]
  - Sleep disorder [Unknown]
  - Vomiting [Unknown]
  - Suicidal ideation [Not Recovered/Not Resolved]
  - Confusional state [Not Recovered/Not Resolved]
  - Drug withdrawal syndrome [Unknown]
  - Depression [Unknown]
  - Asthenia [Unknown]
  - Agitation [Unknown]
  - Somnolence [Not Recovered/Not Resolved]
  - Decreased appetite [Unknown]
  - Disorientation [Not Recovered/Not Resolved]
  - Therapeutic product ineffective [Unknown]
  - Exposure during pregnancy [Unknown]
  - Paraesthesia [Unknown]

NARRATIVE: CASE EVENT DATE: 20030101
